FAERS Safety Report 25338289 (Version 2)
Quarter: 2025Q3

REPORT INFORMATION
  Report Type: Spontaneous
  Country: EU (occurrence: EU)
  Receive Date: 20250520
  Receipt Date: 20250904
  Transmission Date: 20251021
  Serious: Yes (Other)
  Sender: ALEXION PHARMACEUTICALS
  Company Number: None

PATIENT
  Age: 65 Year
  Sex: Male
  Weight: 95 kg

DRUGS (3)
  1. IMFINZI [Suspect]
     Active Substance: DURVALUMAB
     Indication: Neoplasm malignant
     Dates: start: 20250107, end: 20250107
  2. IMFINZI [Suspect]
     Active Substance: DURVALUMAB
     Dates: start: 20250204, end: 20250204
  3. IMFINZI [Suspect]
     Active Substance: DURVALUMAB
     Dates: start: 20250304, end: 20250304

REACTIONS (1)
  - Pulmonary interstitial emphysema syndrome [Recovering/Resolving]

NARRATIVE: CASE EVENT DATE: 20250325
